FAERS Safety Report 22632486 (Version 4)
Quarter: 2024Q1

REPORT INFORMATION
  Report Type: Report from Study
  Country: EG (occurrence: EG)
  Receive Date: 20230623
  Receipt Date: 20240125
  Transmission Date: 20240410
  Serious: Yes (Life-Threatening, Other)
  Sender: FDA-Public Use
  Company Number: EG-002147023-NVSC2023EG140737

PATIENT
  Sex: Female

DRUGS (8)
  1. COSENTYX [Suspect]
     Active Substance: SECUKINUMAB
     Indication: Psoriatic arthropathy
     Dosage: 2 DOSAGE FORM, QW (150 MG) (FOR 1 MONTH AS LOADING DOSE FOLLOWED BY 1 MONTH GAP) (EVERY WEEK FOR ONE
     Route: 058
     Dates: start: 2019, end: 2020
  2. COSENTYX [Suspect]
     Active Substance: SECUKINUMAB
     Indication: Skin lesion
     Dosage: 2 DOSAGE FORM, QMO (150 MG) (AS MAINTENANCE DOSE)
     Route: 058
     Dates: end: 202212
  3. COSENTYX [Suspect]
     Active Substance: SECUKINUMAB
     Dosage: 1 DOSAGE FORM, QMO (EVERY MONTH AS A MAINTENANCE DOSE)
     Route: 058
  4. COSENTYX [Suspect]
     Active Substance: SECUKINUMAB
     Dosage: 2 DOSAGE FORM, QW (150 MG), (2 PENS EVERY WEEK FOR ONE MONTH AS A LOADING DOSE THEN 2 PEN EVERY MONT
     Route: 058
  5. DAIVOBET [Concomitant]
     Active Substance: BETAMETHASONE DIPROPIONATE\CALCIPOTRIENE
     Indication: Skin exfoliation
     Dosage: UNK, PRN (WHEN NEEDED)
     Route: 065
     Dates: start: 2019
  6. BETAMETHASONE DIPROPIONATE\CALCIPOTRIENE HYDRATE [Concomitant]
     Active Substance: BETAMETHASONE DIPROPIONATE\CALCIPOTRIENE HYDRATE
     Indication: Skin exfoliation
     Dosage: UNK, PRN (WHEN NEEDED)
     Route: 065
     Dates: start: 2019
  7. FEXOFENADINE [Concomitant]
     Active Substance: FEXOFENADINE HYDROCHLORIDE
     Indication: Hypersensitivity
     Dosage: 1 DOSAGE FORM, QD (1 TABLET AT NIGHT WHEN NEEDED AND SOMETIMES CONTINOUS)
     Route: 065
     Dates: start: 2019
  8. LORATADINE [Concomitant]
     Active Substance: LORATADINE
     Indication: Hypersensitivity
     Dosage: 1 DOSAGE FORM, QD (1 TABLET AT NIGHT WHEN NEEDED AND SOMETIMES CONTINOUS)
     Route: 065
     Dates: start: 2019

REACTIONS (10)
  - Feeling abnormal [Unknown]
  - Psoriatic arthropathy [Not Recovered/Not Resolved]
  - Pain [Not Recovered/Not Resolved]
  - Psoriasis [Unknown]
  - Skin exfoliation [Unknown]
  - Pruritus [Not Recovered/Not Resolved]
  - COVID-19 [Unknown]
  - Inappropriate schedule of product administration [Unknown]
  - Off label use [Not Recovered/Not Resolved]
  - Product use issue [Unknown]

NARRATIVE: CASE EVENT DATE: 20190101
